FAERS Safety Report 5263846-6 (Version None)
Quarter: 2007Q1

REPORT INFORMATION
  Report Type: 
  Country: None (occurrence: None)
  Receive Date: 20061213
  Receipt Date: 20040630
  Transmission Date: 20070707
  Serious: Yes (Other)
  Sender: FDA-Public Use
  Company Number: 2004UW13565

PATIENT
  Age: 54 Year
  Sex: Female
  Weight: 86.1834 kg

DRUGS (9)
  1. IRESSA [Suspect]
     Indication: BRAIN NEOPLASM MALIGNANT
     Dosage: 250 MG PO
     Route: 048
  2. IRESSA [Suspect]
     Indication: LUNG NEOPLASM MALIGNANT
     Dosage: 250 MG PO
     Route: 048
  3. COUMADIN [Concomitant]
  4. DECADRON [Concomitant]
  5. LASIX [Concomitant]
  6. MORPHINE [Concomitant]
  7. LORTAB [Concomitant]
  8. LEVAQUIN [Concomitant]
  9. ATIVAN [Concomitant]

REACTIONS (7)
  - ASTHENIA [None]
  - COUGH [None]
  - DIZZINESS [None]
  - HAEMATEMESIS [None]
  - OEDEMA PERIPHERAL [None]
  - PAIN IN EXTREMITY [None]
  - WEIGHT INCREASED [None]
